FAERS Safety Report 17549292 (Version 1)
Quarter: 2020Q1

REPORT INFORMATION
  Report Type: Spontaneous
  Country: US (occurrence: US)
  Receive Date: 20200317
  Receipt Date: 20200317
  Transmission Date: 20200409
  Serious: No
  Sender: FDA-Public Use
  Company Number: US-B.I. PHARMACEUTICALS,INC./RIDGEFIELD-2020-US-014316

PATIENT
  Sex: Female

DRUGS (1)
  1. SPIRIVA RESPIMAT [Suspect]
     Active Substance: TIOTROPIUM BROMIDE
     Indication: ATELECTASIS
     Dosage: 1.25 MCG 2 INHALATIONS DAILY
     Route: 055
     Dates: start: 20200225

REACTIONS (2)
  - Off label use [Unknown]
  - Dyspnoea [Unknown]
